FAERS Safety Report 6346501-0 (Version None)
Quarter: 2009Q3

REPORT INFORMATION
  Report Type: 
  Country: None (occurrence: None)
  Receive Date: 20090909
  Receipt Date: 20090831
  Transmission Date: 20100115
  Serious: Yes (Other)
  Sender: FDA-Public Use
  Company Number: US-B.I. PHARMACEUTICALS,INC./RIDGEFIELD-2009-BP-07896BP

PATIENT
  Age: 63 Year
  Sex: Male

DRUGS (7)
  1. FLOMAX [Suspect]
     Indication: PROSTATOMEGALY
     Dosage: 0.4 MG
     Route: 048
     Dates: start: 20070101
  2. FLOMAX [Suspect]
     Indication: BENIGN PROSTATIC HYPERPLASIA
  3. AVODART [Concomitant]
     Indication: BENIGN PROSTATIC HYPERPLASIA
  4. ASPIRIN [Concomitant]
     Indication: PROPHYLAXIS
  5. FISH OIL [Concomitant]
  6. VITAMIN B COMPLEX CAP [Concomitant]
  7. VITAMIN [Concomitant]

REACTIONS (5)
  - BLOOD URINE PRESENT [None]
  - DRY EYE [None]
  - HAEMATOSPERMIA [None]
  - PROSTATE CANCER STAGE I [None]
  - RETROGRADE EJACULATION [None]
